FAERS Safety Report 16404072 (Version 4)
Quarter: 2022Q1

REPORT INFORMATION
  Report Type: Spontaneous
  Country: PT (occurrence: PT)
  Receive Date: 20190607
  Receipt Date: 20220324
  Transmission Date: 20220423
  Serious: Yes (Hospitalization, Other)
  Sender: FDA-Public Use
  Company Number: PT-AUROBINDO-AUR-APL-2019-031852

PATIENT
  Age: 77 Year
  Sex: Male

DRUGS (5)
  1. AMLODIPINE [Suspect]
     Active Substance: AMLODIPINE BESYLATE
     Indication: Hypertension
     Dosage: UNK
     Route: 065
  2. INDAPAMIDE [Suspect]
     Active Substance: INDAPAMIDE
     Indication: Hypertension
     Dosage: UNK
     Route: 065
  3. METFORMIN [Suspect]
     Active Substance: METFORMIN HYDROCHLORIDE
     Indication: Type 2 diabetes mellitus
     Dosage: UNK
     Route: 065
  4. TELMISARTAN [Suspect]
     Active Substance: TELMISARTAN
     Indication: Hypertension
     Dosage: UNK
     Route: 065
  5. TWYNSTA [Suspect]
     Active Substance: AMLODIPINE BESYLATE\TELMISARTAN
     Indication: Hypertension
     Dosage: UNK
     Route: 065

REACTIONS (9)
  - Tubulointerstitial nephritis [Recovered/Resolved]
  - Blood pressure increased [Unknown]
  - Red blood cell sedimentation rate increased [Unknown]
  - Renal mass [Recovering/Resolving]
  - Blood creatinine increased [Unknown]
  - Paraesthesia [Unknown]
  - Asthenia [Unknown]
  - Drug ineffective [Unknown]
  - Acute kidney injury [Recovering/Resolving]
